FAERS Safety Report 23078656 (Version 1)
Quarter: 2023Q4

REPORT INFORMATION
  Report Type: Spontaneous
  Country: TR (occurrence: TR)
  Receive Date: 20231018
  Receipt Date: 20231018
  Transmission Date: 20240110
  Serious: Yes (Other)
  Sender: FDA-Public Use
  Company Number: TR-GLAXOSMITHKLINE-TR2023TRK139401

PATIENT

DRUGS (2)
  1. ZYBAN [Suspect]
     Active Substance: BUPROPION HYDROCHLORIDE
     Indication: Product used for unknown indication
     Dosage: 150 MG
  2. VARENICLINE TARTRATE [Concomitant]
     Active Substance: VARENICLINE TARTRATE
     Indication: Ex-tobacco user
     Dosage: UNK

REACTIONS (5)
  - Mental impairment [Unknown]
  - Nausea [Unknown]
  - Insomnia [Unknown]
  - Headache [Unknown]
  - Social problem [Unknown]
